FAERS Safety Report 18911282 (Version 1)
Quarter: 2021Q1

REPORT INFORMATION
  Report Type: Spontaneous
  Country: US (occurrence: US)
  Receive Date: 20210218
  Receipt Date: 20210218
  Transmission Date: 20210420
  Serious: Yes (Other)
  Sender: FDA-Public Use
  Company Number: US-PFIZER INC-2021152385

PATIENT
  Age: 61 Year
  Sex: Male
  Weight: 74.83 kg

DRUGS (4)
  1. OMEPRAZOLE. [Concomitant]
     Active Substance: OMEPRAZOLE
  2. METFORMIN [Concomitant]
     Active Substance: METFORMIN HYDROCHLORIDE
  3. SUTENT [Suspect]
     Active Substance: SUNITINIB MALATE
     Indication: PANCREATIC CARCINOMA
     Dosage: 37.5 MG, DAILY (1 CAP BY MOUTH)
     Route: 048
  4. ELIQUIS [Concomitant]
     Active Substance: APIXABAN

REACTIONS (3)
  - White blood cell count decreased [Unknown]
  - Chills [Recovered/Resolved]
  - Arthralgia [Unknown]
